FAERS Safety Report 19370464 (Version 1)
Quarter: 2021Q2

REPORT INFORMATION
  Report Type: Other
  Country: JP (occurrence: JP)
  Receive Date: 20210604
  Receipt Date: 20210604
  Transmission Date: 20210717
  Serious: Yes (Other)
  Sender: FDA-Public Use
  Company Number: JP-TECHDOW-2021TECHDOW000610

PATIENT

DRUGS (1)
  1. HEPARIN SODIUM INJECTION, USP (PRESERVATIVE FREE) [Suspect]
     Active Substance: HEPARIN SODIUM

REACTIONS (1)
  - Abortion spontaneous [Unknown]
